FAERS Safety Report 14949174 (Version 1)
Quarter: 2018Q2

REPORT INFORMATION
  Report Type: Report from Study
  Country: US (occurrence: US)
  Receive Date: 20180529
  Receipt Date: 20180529
  Transmission Date: 20180711
  Serious: Yes (Hospitalization, Other)
  Sender: FDA-Public Use
  Company Number: US-ASTELLAS-2017US008667

PATIENT
  Sex: Female
  Weight: 57 kg

DRUGS (18)
  1. MORPHINE [Concomitant]
     Active Substance: MORPHINE
     Indication: PAIN
     Dosage: 25 MG, ONCE DAILY (HAS BEEN ON FOR 3 OR 4 YEARS)
     Route: 048
  2. NEURONTIN [Concomitant]
     Active Substance: GABAPENTIN
     Indication: DIABETIC NEUROPATHY
     Dosage: 400 MG, TWICE DAILY (HAS BEEN ON FOR ABOUT 20 YEARS)
     Route: 048
  3. ERLOTINIB [Suspect]
     Active Substance: ERLOTINIB
     Indication: LUNG NEOPLASM MALIGNANT
     Route: 048
     Dates: start: 201610, end: 201612
  4. ERLOTINIB [Suspect]
     Active Substance: ERLOTINIB
     Route: 048
     Dates: start: 201705
  5. HUMALOG [Concomitant]
     Active Substance: INSULIN LISPRO
     Indication: TYPE 1 DIABETES MELLITUS
     Dosage: 10 IU, UNKNOWN FREQ. (SLIDING SCALE IN BETWEEN THE AM/PM DOSES OF 70/30)
     Route: 058
     Dates: start: 201701
  6. LOVASTATIN. [Concomitant]
     Active Substance: LOVASTATIN
     Indication: BLOOD CHOLESTEROL
     Dosage: 20 MG, ONCE DAILY (HAS BEEN ON FOR A COUPLE OF YEARS)
     Route: 048
  7. ERLOTINIB [Suspect]
     Active Substance: ERLOTINIB
     Route: 048
     Dates: start: 201612, end: 201707
  8. OXYCODONE [Concomitant]
     Active Substance: OXYCODONE
     Indication: BACK PAIN
     Dosage: 7.5 MG, TWICE DAILY (7.5/325 HAS BEEN ON FOR 4 YEARS OR LONGER)
     Route: 048
  9. LEVEMIR [Concomitant]
     Active Substance: INSULIN DETEMIR
     Indication: DIABETES MELLITUS
     Dosage: UNK, UNKNOWN FREQ.
     Route: 065
  10. MORPHINE [Concomitant]
     Active Substance: MORPHINE
     Indication: BACK PAIN
     Route: 048
  11. PREDNISONE. [Concomitant]
     Active Substance: PREDNISONE
     Indication: PRODUCT USED FOR UNKNOWN INDICATION
     Route: 048
     Dates: start: 2003
  12. ERLOTINIB [Suspect]
     Active Substance: ERLOTINIB
     Dosage: 25 MG, THRICE DAILY (TAKES 3 AT NIGHT)
     Route: 048
     Dates: start: 201707
  13. PROGRAF [Suspect]
     Active Substance: TACROLIMUS\TACROLIMUS ANHYDROUS
     Indication: PANCREAS TRANSPLANT
     Dosage: 0.5 MG, TWICE DAILY (1 IN AM AND 1 IN PM )
     Route: 048
     Dates: start: 2003
  14. BACLOFEN. [Concomitant]
     Active Substance: BACLOFEN
     Indication: MYALGIA
     Dosage: 10 MG, ONCE DAILY (BEFORE TARCEVA BUT NO DATE PROVIDED)
     Route: 048
  15. NOVOLIN [Concomitant]
     Active Substance: INSULIN HUMAN
     Indication: DIABETES MELLITUS
     Dosage: UNK UNK, UNKNOWN FREQ. (27 UNITS IN THE AM + 5 UNITS IN THE PM)
     Route: 058
     Dates: start: 201612
  16. HUMULIN NOS [Concomitant]
     Active Substance: INSULIN HUMAN
     Indication: PRODUCT USED FOR UNKNOWN INDICATION
     Dosage: 100 MG, UNKNOWN FREQ. (SLIDIJNG SCALE)
     Route: 065
  17. OXYBUTYNIN. [Concomitant]
     Active Substance: OXYBUTYNIN CHLORIDE
     Indication: URINARY INCONTINENCE
     Dosage: 5 MG, THRICE DAILY (HAS BEEN ON FOR QUITE A FEW YEARS)
     Route: 048
  18. NOVOLIN [Concomitant]
     Active Substance: INSULIN HUMAN
     Indication: TYPE 1 DIABETES MELLITUS
     Dosage: 25 IU, TWICE DAILY (TAKES 25 IN AM AND 25 IN PM )
     Route: 065
     Dates: start: 201701

REACTIONS (43)
  - Alopecia [Recovering/Resolving]
  - Nasal ulcer [Recovering/Resolving]
  - Hair texture abnormal [Not Recovered/Not Resolved]
  - Rectal ulcer [Recovering/Resolving]
  - Mass [Recovered/Resolved]
  - Madarosis [Recovering/Resolving]
  - Fall [Unknown]
  - Malaise [Recovered/Resolved]
  - Nausea [Unknown]
  - Onychoclasis [Recovered/Resolved]
  - Rectal ulcer [Not Recovered/Not Resolved]
  - Blood glucose decreased [Unknown]
  - Contusion [Not Recovered/Not Resolved]
  - Urinary tract infection bacterial [Unknown]
  - Vomiting [Recovered/Resolved]
  - Diarrhoea [Recovered/Resolved]
  - Muscular weakness [Unknown]
  - Decreased appetite [Unknown]
  - Diarrhoea [Not Recovered/Not Resolved]
  - Skin haemorrhage [Recovered/Resolved]
  - Mass [Not Recovered/Not Resolved]
  - Eye disorder [Recovering/Resolving]
  - Alopecia [Recovering/Resolving]
  - Rash [Not Recovered/Not Resolved]
  - Dizziness [Unknown]
  - Vision blurred [Recovered/Resolved with Sequelae]
  - Constipation [Unknown]
  - Skin ulcer [Recovering/Resolving]
  - Skin fissures [Recovered/Resolved]
  - Gastric ulcer [Not Recovered/Not Resolved]
  - Proctalgia [Not Recovered/Not Resolved]
  - Sinus disorder [Recovered/Resolved]
  - Hair growth abnormal [Not Recovered/Not Resolved]
  - Vomiting [Recovered/Resolved]
  - Weight decreased [Not Recovered/Not Resolved]
  - Renal failure [Recovered/Resolved]
  - Nausea [Unknown]
  - Hair growth abnormal [Recovering/Resolving]
  - Memory impairment [Unknown]
  - Visual impairment [Not Recovered/Not Resolved]
  - Viral infection [Recovering/Resolving]
  - Gastrointestinal infection [Not Recovered/Not Resolved]
  - Weight decreased [Unknown]

NARRATIVE: CASE EVENT DATE: 2016
